FAERS Safety Report 18217708 (Version 2)
Quarter: 2020Q3

REPORT INFORMATION
  Report Type: Report from Study
  Country: US (occurrence: US)
  Receive Date: 20200901
  Receipt Date: 20200924
  Transmission Date: 20201103
  Serious: Yes (Hospitalization, Other)
  Sender: FDA-Public Use
  Company Number: US-RETROPHIN, INC.-2020RTN00087

PATIENT
  Sex: Male
  Weight: 12.55 kg

DRUGS (2)
  1. CHOLIC ACID [Suspect]
     Active Substance: CHOLIC ACID
     Indication: CEREBROHEPATORENAL SYNDROME
     Dosage: 50 MG, 2X/DAY
     Route: 048
     Dates: start: 20190808, end: 20200804
  2. CHOLIC ACID [Suspect]
     Active Substance: CHOLIC ACID
     Indication: REFSUM^S DISEASE

REACTIONS (5)
  - Liver disorder [Unknown]
  - Portal tract inflammation [Recovered/Resolved]
  - Hepatic cirrhosis [Recovered/Resolved]
  - Deafness [Unknown]
  - Blindness [Unknown]
